FAERS Safety Report 5301704-9 (Version None)
Quarter: 2007Q1

REPORT INFORMATION
  Report Type: 
  Country: None (occurrence: None)
  Receive Date: 20070208
  Receipt Date: 20061127
  Transmission Date: 20070707
  Serious: Yes (Other)
  Sender: FDA-Public Use
  Company Number: PROG00206003863

PATIENT
  Age: 56 Year
  Sex: Female

DRUGS (9)
  1. PROMETRIUM [Suspect]
     Indication: HORMONE REPLACEMENT THERAPY
     Dosage: DAILY ORAL
     Route: 048
     Dates: start: 19990301, end: 20020301
  2. ESTRATEST H.S. [Suspect]
     Indication: HORMONE REPLACEMENT THERAPY
     Dosage: DAILY ORAL
     Route: 048
     Dates: start: 19991001, end: 20020301
  3. PREMPRO [Suspect]
     Indication: HORMONE REPLACEMENT THERAPY
     Dosage: DAILY ORAL
     Route: 048
     Dates: start: 19980101, end: 19990301
  4. PREMARIN [Suspect]
     Indication: HORMONE REPLACEMENT THERAPY
     Dosage: DAILY ORAL
     Route: 048
     Dates: start: 19990301, end: 19991001
  5. DYAZIDE (TRIAMTERENE HCTZ) [Concomitant]
  6. SYNTHROID [Concomitant]
  7. BACTRIM [Concomitant]
  8. FENPHEN (PHENTERMINE/FENFLURAMINE) [Concomitant]
  9. NEXIUM [Concomitant]

REACTIONS (1)
  - BREAST CANCER [None]
